FAERS Safety Report 5476399-4 (Version None)
Quarter: 2007Q3

REPORT INFORMATION
  Report Type: 
  Country: None (occurrence: None)
  Receive Date: 20070904
  Receipt Date: 20070731
  Transmission Date: 20080115
  Serious: No
  Sender: FDA-Public Use
  Company Number: PHEH2007US07949

PATIENT
  Age: 80 Year
  Sex: Female

DRUGS (2)
  1. ENABLEX [Suspect]
     Indication: URGE INCONTINENCE
     Dosage: 7.5 MG QD ORAL
     Route: 048
     Dates: start: 20070521, end: 20070604
  2. LEVOXYL [Concomitant]

REACTIONS (3)
  - EYE DISORDER [None]
  - READING DISORDER [None]
  - VISION BLURRED [None]
